FAERS Safety Report 24701244 (Version 1)
Quarter: 2024Q4

REPORT INFORMATION
  Report Type: Spontaneous
  Country: BE (occurrence: BE)
  Receive Date: 20241205
  Receipt Date: 20241205
  Transmission Date: 20250114
  Serious: Yes (Other)
  Sender: MERCK
  Company Number: BE-009507513-2411BEL002780

PATIENT
  Age: 37 Year
  Sex: Female
  Weight: 88 kg

DRUGS (1)
  1. DELSTRIGO [Suspect]
     Active Substance: DORAVIRINE\LAMIVUDINE\TENOFOVIR DISOPROXIL FUMARATE
     Indication: HIV infection
     Dosage: UNK, QD
     Route: 048
     Dates: start: 20220128

REACTIONS (3)
  - Drug ineffective [Recovered/Resolved]
  - Blood HIV RNA increased [Recovered/Resolved]
  - Maternal exposure during pregnancy [Recovered/Resolved]

NARRATIVE: CASE EVENT DATE: 20240201
